FAERS Safety Report 6518295-7 (Version None)
Quarter: 2009Q4

REPORT INFORMATION
  Report Type: 
  Country: None (occurrence: None)
  Receive Date: 20091224
  Receipt Date: 20091223
  Transmission Date: 20100525
  Serious: Yes (Hospitalization)
  Sender: FDA-Public Use
  Company Number: AU-B.I. PHARMACEUTICALS,INC./RIDGEFIELD-2009-AU-00758AU

PATIENT
  Sex: Female

DRUGS (3)
  1. MOBIC [Suspect]
     Indication: BACK PAIN
     Dosage: 15 MG
     Dates: start: 20090903, end: 20090924
  2. MOBIC [Suspect]
     Indication: SCIATICA
  3. ACETAMINOPHEN W/ CODEINE [Concomitant]
     Dosage: 500/30 THREE TIMES A DAY
     Dates: start: 20090903

REACTIONS (2)
  - ACUTE PULMONARY OEDEMA [None]
  - HYPERTENSION [None]
